FAERS Safety Report 8598209-9 (Version None)
Quarter: 2012Q3

REPORT INFORMATION
  Report Type: 
  Country: None (occurrence: None)
  Receive Date: 20120802
  Receipt Date: 20120723
  Transmission Date: 20120928
  Serious: Yes (Hospitalization, Other)
  Sender: FDA-Public Use
  Company Number: ADR-2012-01401

PATIENT
  Age: 14 Year
  Sex: Male

DRUGS (2)
  1. LIORESAL [Suspect]
     Indication: MUSCLE SPASTICITY
  2. LIORESAL [Suspect]
     Indication: CEREBRAL PALSY

REACTIONS (6)
  - INTRACRANIAL HYPOTENSION [None]
  - PSEUDOMONAS TEST POSITIVE [None]
  - KLEBSIELLA TEST POSITIVE [None]
  - IMPLANT SITE INFECTION [None]
  - WOUND INFECTION [None]
  - IMPLANT SITE DISCHARGE [None]
